FAERS Safety Report 8308429-6 (Version None)
Quarter: 2012Q2

REPORT INFORMATION
  Report Type: 
  Country: None (occurrence: None)
  Receive Date: 20120424
  Receipt Date: 20120418
  Transmission Date: 20120825
  Serious: Yes (Hospitalization)
  Sender: FDA-Public Use
  Company Number: US-B.I. PHARMACEUTICALS,INC./RIDGEFIELD-2012-BP-07428BP

PATIENT
  Age: 40 Year
  Sex: Male

DRUGS (2)
  1. METFORMIN HCL [Concomitant]
  2. TRADJENTA [Suspect]
     Dosage: 5 MG
     Route: 048
     Dates: start: 20111101, end: 20111101

REACTIONS (4)
  - PANCREATITIS [None]
  - VOMITING [None]
  - NAUSEA [None]
  - DIARRHOEA [None]
